FAERS Safety Report 12520934 (Version 3)
Quarter: 2016Q4

REPORT INFORMATION
  Report Type: Spontaneous
  Country: US (occurrence: US)
  Receive Date: 20160701
  Receipt Date: 20161109
  Transmission Date: 20170207
  Serious: No
  Sender: FDA-Public Use
  Company Number: US-GLAXOSMITHKLINE-US2016088943

PATIENT
  Age: 69 Year
  Sex: Male

DRUGS (13)
  1. ADVAIR DISKUS [Suspect]
     Active Substance: FLUTICASONE PROPIONATE\SALMETEROL XINAFOATE
     Indication: ASTHMA
     Dosage: 1 PUFF(S), BID
     Route: 055
     Dates: start: 2006
  2. LOSARTAN. [Concomitant]
     Active Substance: LOSARTAN
  3. TAMSULOSIN [Concomitant]
     Active Substance: TAMSULOSIN
  4. AMLODIPINE [Concomitant]
     Active Substance: AMLODIPINE BESYLATE
  5. RANITIDINE. [Concomitant]
     Active Substance: RANITIDINE
  6. AZELASTINE NASAL SPRAY [Concomitant]
  7. NEBULIZED ALBUTEROL [Concomitant]
     Active Substance: ALBUTEROL
  8. FINASTERIDE. [Concomitant]
     Active Substance: FINASTERIDE
  9. ALPRAZOLAM. [Concomitant]
     Active Substance: ALPRAZOLAM
  10. MONTELUKAST [Concomitant]
     Active Substance: MONTELUKAST SODIUM
  11. SIMVASTATIN. [Concomitant]
     Active Substance: SIMVASTATIN
  12. FLUTICASONE NASAL SPRAY [Concomitant]
     Active Substance: FLUTICASONE\FLUTICASONE PROPIONATE
  13. XOPENEX [Concomitant]
     Active Substance: LEVALBUTEROL HYDROCHLORIDE

REACTIONS (2)
  - Asthma [Recovering/Resolving]
  - Off label use [Unknown]

NARRATIVE: CASE EVENT DATE: 20160617
